FAERS Safety Report 6846992-2 (Version None)
Quarter: 2010Q3

REPORT INFORMATION
  Report Type: 
  Country: None (occurrence: None)
  Receive Date: 20100714
  Receipt Date: 20100708
  Transmission Date: 20110219
  Serious: Yes (Hospitalization)
  Sender: FDA-Public Use
  Company Number: TRP_07091_2010

PATIENT
  Sex: Female

DRUGS (2)
  1. RIBAVARIN [Suspect]
     Indication: HEPATITIS C
     Dosage: 1000 MG, 600 MG QAM AND 400 MG QPM ORAL
     Route: 048
     Dates: start: 20100301, end: 20100101
  2. PEGASYS [Suspect]
     Indication: HEPATITIS C
     Dosage: DF
     Dates: start: 20100301, end: 20100101

REACTIONS (2)
  - BLOOD COUNT ABNORMAL [None]
  - HAEMOGLOBIN DECREASED [None]
